FAERS Safety Report 18807976 (Version 1)
Quarter: 2021Q1

REPORT INFORMATION
  Report Type: Spontaneous
  Country: US (occurrence: US)
  Receive Date: 20210126
  Receipt Date: 20210126
  Transmission Date: 20210419
  Serious: Yes (Life-Threatening)
  Sender: FDA-Public Use
  Company Number: None

PATIENT
  Age: 43 Year
  Sex: Male
  Weight: 81.65 kg

DRUGS (5)
  1. SYNTHROID [Suspect]
     Active Substance: LEVOTHYROXINE SODIUM
  2. LAMICTAL [Suspect]
     Active Substance: LAMOTRIGINE
     Indication: PSYCHOTHERAPY
  3. INHALER?ALBUTEROL [Concomitant]
  4. VITAMIN D3 [Concomitant]
     Active Substance: CHOLECALCIFEROL
  5. MONTELUKAST [Concomitant]
     Active Substance: MONTELUKAST SODIUM

REACTIONS (18)
  - Ocular hyperaemia [None]
  - Erythema [None]
  - Rash erythematous [None]
  - Weight increased [None]
  - Alopecia [None]
  - Muscle fatigue [None]
  - Rash [None]
  - Chest discomfort [None]
  - Seizure [None]
  - Lip swelling [None]
  - Muscle spasms [None]
  - Eye swelling [None]
  - Blood glucose increased [None]
  - Swelling face [None]
  - Skin exfoliation [None]
  - Chest pain [None]
  - Arthralgia [None]
  - Lip erythema [None]

NARRATIVE: CASE EVENT DATE: 20200801
